FAERS Safety Report 9253401 (Version 3)
Quarter: 2013Q2

REPORT INFORMATION
  Report Type: Spontaneous
  Country: JP (occurrence: JP)
  Receive Date: 20130425
  Receipt Date: 20130530
  Transmission Date: 20140414
  Serious: Yes (Other)
  Sender: FDA-Public Use
  Company Number: JP-ROCHE-1217422

PATIENT
  Age: 88 Year
  Sex: Female

DRUGS (9)
  1. TAMIFLU [Suspect]
     Indication: INFLUENZA
     Route: 048
     Dates: start: 20130413, end: 20130416
  2. MAGLAX [Concomitant]
     Indication: INFLUENZA
     Route: 048
     Dates: start: 20130318
  3. TANATRIL [Concomitant]
     Indication: INFLUENZA
     Route: 048
  4. HERBESSER R [Concomitant]
     Indication: INFLUENZA
     Route: 048
  5. ARICEPT [Concomitant]
     Indication: INFLUENZA
     Route: 048
  6. ALOGLIPTIN BENZOATE [Concomitant]
     Indication: INFLUENZA
     Route: 048
     Dates: start: 20120322
  7. DIGOXIN [Concomitant]
     Indication: INFLUENZA
     Route: 048
  8. BAYASPIRIN [Concomitant]
     Indication: INFLUENZA
     Dosage: TAKEN AS NEEDED
     Route: 048
  9. CALONAL [Concomitant]
     Dosage: TAKEN AS NEEDED
     Route: 048

REACTIONS (2)
  - Delirium [Recovered/Resolved]
  - Laceration [Recovered/Resolved]
